FAERS Safety Report 25215687 (Version 3)
Quarter: 2025Q2

REPORT INFORMATION
  Report Type: Spontaneous
  Country: AR (occurrence: AR)
  Receive Date: 20250418
  Receipt Date: 20250505
  Transmission Date: 20250717
  Serious: Yes (Other)
  Sender: SANDOZ
  Company Number: AR-002147023-NVSC2025AR062494

PATIENT
  Age: 58 Year
  Sex: Female

DRUGS (6)
  1. KISQALI [Suspect]
     Active Substance: RIBOCICLIB SUCCINATE
     Dosage: 600 MG, QD (IN THE MORNING)
     Route: 048
  2. KISQALI [Suspect]
     Active Substance: RIBOCICLIB SUCCINATE
     Indication: Breast cancer metastatic
     Dosage: 600 MG, QD; 3 (200 MG) TABLETS A DAY ALL TOGETHER
     Route: 048
     Dates: start: 20250314
  3. LETROZOLE [Suspect]
     Active Substance: LETROZOLE
     Dosage: 1 DOSAGE FORM, QD
     Route: 065
  4. LETROZOLE [Suspect]
     Active Substance: LETROZOLE
     Indication: Breast cancer metastatic
     Dosage: 2.5 MG, QD (1 OF 2.5 MG)
     Route: 048
     Dates: start: 20250314
  5. ZOMETA [Suspect]
     Active Substance: ZOLEDRONIC ACID
     Indication: Breast cancer metastatic
     Dosage: 4 MG (AMPOULE), QMO/EVERY 28 DAYS)
     Route: 042
     Dates: start: 20250314
  6. ZOMETA [Suspect]
     Active Substance: ZOLEDRONIC ACID
     Dosage: UNK, QMO
     Route: 065

REACTIONS (27)
  - Metastases to bone [Unknown]
  - Anoxia [Unknown]
  - Scar inflammation [Unknown]
  - Lymphoedema [Unknown]
  - Aphasia [Unknown]
  - Feeding disorder [Unknown]
  - Breast discharge [Unknown]
  - Decreased immune responsiveness [Recovering/Resolving]
  - Dysstasia [Recovering/Resolving]
  - Eating disorder [Unknown]
  - Platelet count decreased [Unknown]
  - Eye pain [Unknown]
  - Pain in jaw [Unknown]
  - Fatigue [Unknown]
  - Back pain [Unknown]
  - Headache [Unknown]
  - Vomiting [Unknown]
  - Bone pain [Unknown]
  - Asthenia [Unknown]
  - Vision blurred [Unknown]
  - Pyrexia [Unknown]
  - Feeling hot [Unknown]
  - Pain [Unknown]
  - Dizziness [Recovered/Resolved]
  - Dizziness [Unknown]
  - Malaise [Unknown]
  - Nausea [Unknown]

NARRATIVE: CASE EVENT DATE: 20250301
